FAERS Safety Report 5542783-3 (Version None)
Quarter: 2007Q4

REPORT INFORMATION
  Report Type: 
  Country: None (occurrence: None)
  Receive Date: 20071210
  Receipt Date: 20071128
  Transmission Date: 20080405
  Serious: Yes (Life-Threatening, Hospitalization, Congenital Anomaly, Other)
  Sender: FDA-Public Use
  Company Number: GB-PFIZER INC-2007072545

PATIENT
  Sex: Male
  Weight: 3.8 kg

DRUGS (1)
  1. PROSTIN E2 [Suspect]
     Indication: LABOUR INDUCTION
     Dates: start: 20010816, end: 20010816

REACTIONS (4)
  - BRADYCARDIA FOETAL [None]
  - CEREBRAL PALSY [None]
  - DISABLED RELATIVE [None]
  - HYPOXIC ENCEPHALOPATHY [None]
